FAERS Safety Report 24404869 (Version 1)
Quarter: 2024Q4

REPORT INFORMATION
  Report Type: Spontaneous
  Country: US (occurrence: None)
  Receive Date: 20241004
  Receipt Date: 20241004
  Transmission Date: 20250115
  Serious: Yes (Life-Threatening)
  Sender: Public
  Company Number: None

PATIENT
  Age: 9 Year
  Sex: Male
  Weight: 20.2 kg

DRUGS (1)
  1. DOTAREM [Suspect]
     Active Substance: GADOTERATE MEGLUMINE
     Route: 042

REACTIONS (6)
  - Anaesthetic complication [None]
  - Cough [None]
  - Erythema [None]
  - Urticaria [None]
  - Rash macular [None]
  - Cardio-respiratory arrest [None]

NARRATIVE: CASE EVENT DATE: 20241004
